FAERS Safety Report 21410499 (Version 1)
Quarter: 2022Q4

REPORT INFORMATION
  Report Type: Spontaneous
  Country: US (occurrence: None)
  Receive Date: 20221003
  Receipt Date: 20221003
  Transmission Date: 20230113
  Serious: Yes (Hospitalization)
  Sender: FDA-Public Use
  Company Number: None

PATIENT
  Age: 58 Year
  Sex: Female

DRUGS (5)
  1. DROXIDOPA [Suspect]
     Active Substance: DROXIDOPA
     Indication: Illness
     Dosage: FREQUENCY : 3 TIMES A DAY;?
     Route: 048
     Dates: start: 202209
  2. DROXIDOPA [Suspect]
     Active Substance: DROXIDOPA
     Dosage: FREQUENCY : 3 TIMES A DAY;?
     Route: 048
  3. DROXIDOPA [Suspect]
     Active Substance: DROXIDOPA
     Dosage: FREQUENCY : 3 TIMES A DAY;?
     Route: 048
  4. CLONIDINE [Suspect]
     Active Substance: CLONIDINE
  5. MIDODRINE [Suspect]
     Active Substance: MIDODRINE
     Indication: Illness
     Route: 048
     Dates: start: 202209

REACTIONS (1)
  - Medical observation [None]

NARRATIVE: CASE EVENT DATE: 20220925
